FAERS Safety Report 18161402 (Version 2)
Quarter: 2021Q2

REPORT INFORMATION
  Report Type: Spontaneous
  Country: CA (occurrence: CA)
  Receive Date: 20200818
  Receipt Date: 20210429
  Transmission Date: 20210717
  Serious: Yes (Other)
  Sender: FDA-Public Use
  Company Number: CA-B.I. PHARMACEUTICALS,INC./RIDGEFIELD-2020-BI-041642

PATIENT
  Age: 60 Year
  Sex: Female
  Weight: 80 kg

DRUGS (5)
  1. SPIRIVA [Suspect]
     Active Substance: TIOTROPIUM BROMIDE MONOHYDRATE
     Indication: PRODUCT USED FOR UNKNOWN INDICATION
     Dosage: 2 DF
     Route: 065
  2. SALBUTAMOL SULFATE [Suspect]
     Active Substance: ALBUTEROL SULFATE
     Indication: ASTHMA
     Route: 065
  3. PREDNISONE. [Concomitant]
     Active Substance: PREDNISONE
     Indication: ASTHMA
     Dosage: NOT SPECIFIED
     Route: 065
  4. ALVESCO [Suspect]
     Active Substance: CICLESONIDE
     Indication: PRODUCT USED FOR UNKNOWN INDICATION
     Dosage: 2 DOSAGE FORM: AEROSOL, METERED DOSE
     Route: 065
  5. ADVAIR HFA [Suspect]
     Active Substance: FLUTICASONE PROPIONATE\SALMETEROL XINAFOATE
     Indication: ASTHMA
     Dosage: 1 DF
     Route: 065

REACTIONS (32)
  - Asthma [Unknown]
  - Dyspnoea paroxysmal nocturnal [Unknown]
  - Fatigue [Unknown]
  - Sarcoidosis [Unknown]
  - Wheezing [Unknown]
  - Pulmonary mass [Unknown]
  - Lung diffusion test decreased [Unknown]
  - Therapeutic product effect incomplete [Unknown]
  - Obstructive airways disorder [Unknown]
  - Lung hyperinflation [Unknown]
  - Emphysema [Unknown]
  - Histoplasmosis [Unknown]
  - Aspirin-exacerbated respiratory disease [Unknown]
  - Spinal osteoarthritis [Unknown]
  - Bronchial wall thickening [Unknown]
  - Malaise [Unknown]
  - Rales [Unknown]
  - Weight decreased [Unknown]
  - Mucosal haemorrhage [Unknown]
  - Lung opacity [Unknown]
  - Oral candidiasis [Unknown]
  - Productive cough [Unknown]
  - Infection [Unknown]
  - Cough [Unknown]
  - Gastrooesophageal reflux disease [Unknown]
  - Lymphadenopathy [Unknown]
  - Pulmonary cavitation [Unknown]
  - Blood immunoglobulin E increased [Unknown]
  - Eosinophil count increased [Unknown]
  - Bronchial secretion retention [Unknown]
  - Chest X-ray abnormal [Unknown]
  - Night sweats [Unknown]
